FAERS Safety Report 19397941 (Version 1)
Quarter: 2021Q2

REPORT INFORMATION
  Report Type: Spontaneous
  Country: CA (occurrence: CA)
  Receive Date: 20210610
  Receipt Date: 20210610
  Transmission Date: 20210717
  Serious: Yes (Life-Threatening, Other)
  Sender: FDA-Public Use
  Company Number: CA-AUROBINDO-AUR-APL-2021-024029

PATIENT
  Age: 47 Year
  Sex: Female

DRUGS (3)
  1. CEFIXIME. [Suspect]
     Active Substance: CEFIXIME
     Indication: SINUSITIS
     Dosage: 400 MILLIGRAM, ONCE A DAY
     Route: 048
  2. RIFAMPIN. [Suspect]
     Active Substance: RIFAMPIN
     Indication: SINUSITIS
     Dosage: 400 MILLIGRAM, ONCE A DAY
     Route: 048
  3. CLARITHROMYCIN. [Concomitant]
     Active Substance: CLARITHROMYCIN
     Indication: PRODUCT USED FOR UNKNOWN INDICATION
     Dosage: UNK
     Route: 065

REACTIONS (13)
  - Cough [Unknown]
  - Eosinophil count increased [Unknown]
  - Face oedema [Unknown]
  - Pyrexia [Unknown]
  - Alanine aminotransferase increased [Unknown]
  - Blood bilirubin increased [Unknown]
  - Drug reaction with eosinophilia and systemic symptoms [Unknown]
  - Hyponatraemia [Unknown]
  - Aspartate aminotransferase increased [Unknown]
  - Dyspnoea [Unknown]
  - Lymphocyte count decreased [Unknown]
  - Hepatic failure [Unknown]
  - Rash [Unknown]
